FAERS Safety Report 24765957 (Version 4)
Quarter: 2025Q4

REPORT INFORMATION
  Report Type: Spontaneous
  Country: AR (occurrence: AR)
  Receive Date: 20241223
  Receipt Date: 20251203
  Transmission Date: 20260117
  Serious: Yes (Hospitalization)
  Sender: MYLAN
  Company Number: AR-MYLANLABS-2024M1114498

PATIENT
  Age: 61 Year
  Sex: Male

DRUGS (4)
  1. CLOZAPINE [Suspect]
     Active Substance: CLOZAPINE
     Indication: Product used for unknown indication
     Dosage: 300 MILLIGRAM, QD
     Dates: start: 20181015
  2. CLOZAPINE [Suspect]
     Active Substance: CLOZAPINE
     Dosage: 700 MILLIGRAM, QD
     Dates: start: 2024
  3. HALOPERIDOL [Concomitant]
     Active Substance: HALOPERIDOL
     Dosage: 20 MILLIGRAM, QD
  4. CLONAZEPAM [Concomitant]
     Active Substance: CLONAZEPAM
     Dosage: 4 MILLIGRAM, QD

REACTIONS (4)
  - Psychiatric decompensation [Not Recovered/Not Resolved]
  - Suicidal ideation [Recovering/Resolving]
  - Leukocytosis [Recovered/Resolved]
  - Neutrophil count increased [Recovering/Resolving]

NARRATIVE: CASE EVENT DATE: 20250925
